FAERS Safety Report 6203562-7 (Version None)
Quarter: 2009Q2

REPORT INFORMATION
  Report Type: 
  Country: None (occurrence: None)
  Receive Date: 20090522
  Receipt Date: 20090522
  Transmission Date: 20091009
  Serious: Yes (Life-Threatening, Hospitalization)
  Sender: FDA-Public Use
  Company Number: None

PATIENT
  Age: 57 Year
  Sex: Female
  Weight: 75.2971 kg

DRUGS (2)
  1. CEFUROXIME AXETIL [Suspect]
     Indication: PNEUMONIA
     Dosage: 1 TABLET 500 MG 2 X DAY PO
     Route: 048
     Dates: start: 20090508, end: 20090511
  2. AZITHROMYCIN [Suspect]
     Indication: PNEUMONIA
     Dosage: 2 TABS X1 DAY, 1 TAB X 4 DAYS 2/1 DAY, 1/DAY 4 PO
     Route: 048
     Dates: start: 20090508, end: 20090511

REACTIONS (5)
  - ANAPHYLACTIC SHOCK [None]
  - HEADACHE [None]
  - PANIC ATTACK [None]
  - PYREXIA [None]
  - RESPIRATORY ARREST [None]
